FAERS Safety Report 7929397-2 (Version None)
Quarter: 2011Q4

REPORT INFORMATION
  Report Type: 
  Country: None (occurrence: None)
  Receive Date: 20111121
  Receipt Date: 20111116
  Transmission Date: 20120403
  Serious: No
  Sender: FDA-Public Use
  Company Number: US-BIOGENIDEC-2011BI043763

PATIENT
  Age: 38 Year
  Sex: Female

DRUGS (4)
  1. NUEDEXTA [Concomitant]
     Indication: EMOTIONAL DISORDER
  2. TYSABRI [Suspect]
     Indication: MULTIPLE SCLEROSIS
     Route: 042
     Dates: start: 20060824
  3. AVONEX [Concomitant]
     Indication: MULTIPLE SCLEROSIS
     Route: 030
     Dates: start: 20041130, end: 20060804
  4. TYSABRI [Suspect]
     Route: 042
     Dates: start: 20050216, end: 20050216

REACTIONS (4)
  - MUSCLE SPASMS [None]
  - MICTURITION URGENCY [None]
  - PAIN [None]
  - SENSORY DISTURBANCE [None]
